FAERS Safety Report 7623137-2 (Version None)
Quarter: 2011Q3

REPORT INFORMATION
  Report Type: 
  Country: None (occurrence: None)
  Receive Date: 20110720
  Receipt Date: 20110707
  Transmission Date: 20111222
  Serious: Yes (Hospitalization, Other)
  Sender: FDA-Public Use
  Company Number: PHHY2010MX66764

PATIENT
  Sex: Male

DRUGS (1)
  1. RASILEZ [Suspect]
     Indication: HYPERTENSION
     Dosage: 1 DF, QD
     Dates: start: 20100601, end: 20101001

REACTIONS (4)
  - DEVICE RELATED INFECTION [None]
  - BLOOD PRESSURE INADEQUATELY CONTROLLED [None]
  - INFECTION [None]
  - BLOOD PRESSURE INCREASED [None]
